FAERS Safety Report 17377284 (Version 3)
Quarter: 2024Q2

REPORT INFORMATION
  Report Type: Spontaneous
  Country: US (occurrence: US)
  Receive Date: 20200206
  Receipt Date: 20240411
  Transmission Date: 20240716
  Serious: No
  Sender: FDA-Public Use
  Company Number: US-PFIZER INC-2020047796

PATIENT
  Age: 7 Decade
  Sex: Female
  Weight: 60.78 kg

DRUGS (1)
  1. XELJANZ [Suspect]
     Active Substance: TOFACITINIB CITRATE
     Indication: Rheumatoid arthritis
     Dosage: IN THE MORNING AND AFTERNOON BY MOUTH
     Route: 048
     Dates: start: 2012

REACTIONS (3)
  - Hand deformity [Unknown]
  - Herpes zoster [Not Recovered/Not Resolved]
  - Body height decreased [Unknown]

NARRATIVE: CASE EVENT DATE: 20220101
